FAERS Safety Report 9548611 (Version 1)
Quarter: 2013Q3

REPORT INFORMATION
  Report Type: Spontaneous
  Country: US (occurrence: US)
  Receive Date: 20130924
  Receipt Date: 20130924
  Transmission Date: 20140515
  Serious: No
  Sender: FDA-Public Use
  Company Number: US-PFIZER INC-2013273039

PATIENT
  Sex: 0

DRUGS (3)
  1. NEURONTIN [Suspect]
     Indication: NEUROPATHY PERIPHERAL
     Dosage: 300 MG, UNK
  2. NEURONTIN [Suspect]
     Dosage: 600 MG, UNK
  3. NEURONTIN [Suspect]
     Dosage: 600 MG, (300MG IN AM AND 600MG AT BEDTIME.)
     Dates: start: 20130913

REACTIONS (2)
  - Drug ineffective [Unknown]
  - Dizziness [Unknown]
